FAERS Safety Report 8802766 (Version 3)
Quarter: 2014Q2

REPORT INFORMATION
  Report Type: Spontaneous
  Country: US (occurrence: US)
  Receive Date: 20120921
  Receipt Date: 20140630
  Transmission Date: 20141212
  Serious: Yes (Hospitalization, Other)
  Sender: FDA-Public Use
  Company Number: US-009507513-1209USA004335

PATIENT
  Sex: Female
  Weight: 62.59 kg

DRUGS (2)
  1. FOSAMAX [Suspect]
     Indication: OSTEOPOROSIS
     Dosage: 70 MG, Q WEEK
     Route: 048
  2. FOSAMAX PLUS D [Suspect]
     Indication: OSTEOPOROSIS
     Dosage: 70 MG/2800 IU
     Route: 048
     Dates: start: 20050708, end: 200904

REACTIONS (18)
  - Femur fracture [Unknown]
  - Femur fracture [Unknown]
  - Intramedullary rod insertion [Unknown]
  - Internal fixation of fracture [Unknown]
  - Bone graft [Unknown]
  - Intraductal proliferative breast lesion [Unknown]
  - Mastectomy [Unknown]
  - Deafness [Unknown]
  - Fracture nonunion [Unknown]
  - Low turnover osteopathy [Unknown]
  - Osteoarthritis [Unknown]
  - Hysterectomy [Unknown]
  - Appendicectomy [Unknown]
  - Balance disorder [Unknown]
  - Device breakage [Unknown]
  - Blood calcium decreased [Unknown]
  - Nausea [Unknown]
  - Vomiting [Unknown]
